FAERS Safety Report 4585335-4 (Version None)
Quarter: 2005Q1

REPORT INFORMATION
  Report Type: 
  Country: None (occurrence: None)
  Receive Date: 20050214
  Receipt Date: 20050207
  Transmission Date: 20050727
  Serious: Yes (Hospitalization)
  Sender: FDA-Public Use
  Company Number: US-2004-032694

PATIENT
  Age: 57 Year
  Sex: Female
  Weight: 108.8 kg

DRUGS (3)
  1. BETASERON [Suspect]
     Indication: RELAPSING-REMITTING MULTIPLE SCLEROSIS
     Dosage: 8 MIU, EVERY 2D, SUBCUTANEOUS
     Route: 058
     Dates: start: 19960319
  2. LIORESAL ^NOVARTIS^ [Concomitant]
  3. PAXIL [Concomitant]

REACTIONS (3)
  - CONDITION AGGRAVATED [None]
  - CYSTOCELE [None]
  - UTERINE PROLAPSE [None]
